FAERS Safety Report 6311093-9 (Version None)
Quarter: 2009Q3

REPORT INFORMATION
  Report Type: 
  Country: None (occurrence: None)
  Receive Date: 20090817
  Receipt Date: 20090810
  Transmission Date: 20100115
  Serious: No
  Sender: FDA-Public Use
  Company Number: US-B.I. PHARMACEUTICALS,INC./RIDGEFIELD-2009-BP-09479BP

PATIENT
  Sex: Male

DRUGS (5)
  1. SPIRIVA [Suspect]
     Indication: LUNG DISORDER
     Dosage: 18 MCG
     Route: 055
     Dates: start: 20090729
  2. ADVAIR HFA [Concomitant]
     Indication: DYSPNOEA
  3. HYDROCHLOROTHIAZIDE [Concomitant]
     Indication: HYPERTENSION
  4. ASPIRIN [Concomitant]
     Indication: ROUTINE HEALTH MAINTENANCE
  5. BLOOD CLOTTING MEDICATION [Concomitant]

REACTIONS (2)
  - DYSPHAGIA [None]
  - PHARYNGEAL OEDEMA [None]
